FAERS Safety Report 23629897 (Version 2)
Quarter: 2024Q1

REPORT INFORMATION
  Report Type: Spontaneous
  Country: US (occurrence: US)
  Receive Date: 20240314
  Receipt Date: 20240314
  Transmission Date: 20240410
  Serious: No
  Sender: FDA-Public Use
  Company Number: US-ASTELLAS-2023US036621

PATIENT
  Sex: Male

DRUGS (3)
  1. CRESEMBA [Suspect]
     Active Substance: ISAVUCONAZONIUM SULFATE
     Indication: Leukaemia
     Dosage: 372 MG, ONCE DAILY (MORNING)
     Route: 048
     Dates: end: 20231204
  2. CRESEMBA [Suspect]
     Active Substance: ISAVUCONAZONIUM SULFATE
     Dosage: 372 MG, ONCE DAILY (MORNING)
     Route: 048
  3. MICAFUNGIN [Concomitant]
     Active Substance: MICAFUNGIN SODIUM
     Indication: Leukaemia
     Dosage: UNK UNK, THRICE WEEKLY (FOR 2 HOURS)
     Route: 042

REACTIONS (1)
  - Off label use [Unknown]
